FAERS Safety Report 7426029-7 (Version None)
Quarter: 2011Q2

REPORT INFORMATION
  Report Type: 
  Country: None (occurrence: None)
  Receive Date: 20110420
  Receipt Date: 20110415
  Transmission Date: 20111010
  Serious: Yes (Death)
  Sender: FDA-Public Use
  Company Number: US-ASTRAZENECA-2011SE22017

PATIENT
  Age: 61 Year
  Sex: Female

DRUGS (6)
  1. NEXIUM [Suspect]
     Route: 048
  2. CODEINE [Concomitant]
  3. DURAGESIC [Concomitant]
  4. ZOFRAN [Concomitant]
  5. DARVOCET [Concomitant]
  6. VICODIN [Concomitant]

REACTIONS (11)
  - APHAGIA [None]
  - ADVERSE EVENT [None]
  - VOMITING [None]
  - NO ADVERSE EVENT [None]
  - DRUG DOSE OMISSION [None]
  - WRONG DRUG ADMINISTERED [None]
  - INSOMNIA [None]
  - DEPRESSED MOOD [None]
  - DEATH [None]
  - PAIN [None]
  - THERAPEUTIC RESPONSE UNEXPECTED [None]
